FAERS Safety Report 7205599-8 (Version None)
Quarter: 2010Q4

REPORT INFORMATION
  Report Type: 
  Country: None (occurrence: None)
  Receive Date: 20101231
  Receipt Date: 20101222
  Transmission Date: 20110411
  Serious: Yes (Hospitalization)
  Sender: FDA-Public Use
  Company Number: BE-NOVOPROD-320758

PATIENT
  Age: 48 Year
  Sex: Female
  Weight: 62 kg

DRUGS (8)
  1. NOVOSEVEN [Suspect]
     Indication: CONGENITAL THROMBOCYTE DISORDER
     Dosage: 6 MG/2 HOURS, QD
     Route: 042
     Dates: start: 20101214
  2. NOVOSEVEN [Suspect]
     Dosage: 6 MG/3HOURS, QD
     Route: 042
     Dates: start: 20101216
  3. NOVOSEVEN [Suspect]
     Dosage: 6 MG/4 HOURS,QD
     Dates: start: 20101220
  4. NOVOSEVEN [Suspect]
     Dosage: 6 MG/6 HOURS, QD
     Dates: start: 20101221
  5. NOVOSEVEN [Suspect]
     Dosage: 6 MG/8HOURS, QD
     Dates: start: 20101222
  6. NOVOSEVEN [Suspect]
     Dosage: 6 MG/24 HRS, QD
     Dates: start: 20101223, end: 20101223
  7. NOVOSEVEN [Suspect]
  8. EXACYL [Concomitant]
     Dosage: 3 G, QD
     Route: 048
     Dates: start: 20101214, end: 20101221

REACTIONS (2)
  - EPISTAXIS [None]
  - JUGULAR VEIN THROMBOSIS [None]
